FAERS Safety Report 4752488-4 (Version None)
Quarter: 2005Q3

REPORT INFORMATION
  Report Type: 
  Country: None (occurrence: None)
  Receive Date: 20050825
  Receipt Date: 20050817
  Transmission Date: 20060218
  Serious: Yes (Hospitalization)
  Sender: FDA-Public Use
  Company Number: SE-ROCHE-414694

PATIENT
  Sex: Female

DRUGS (2)
  1. PEGASYS [Suspect]
     Indication: HEPATITIS C
     Dosage: ROUTE REPORTED AS INJECTION.
     Route: 050
     Dates: start: 20050524, end: 20050812
  2. COPEGUS [Suspect]
     Indication: HEPATITIS C
     Dosage: REGIMEN REPORTED AS 2X2, 1X1.
     Route: 065
     Dates: start: 20050524, end: 20050812

REACTIONS (3)
  - DIFFICULTY IN WALKING [None]
  - HEADACHE [None]
  - MONOPARESIS [None]
